FAERS Safety Report 8970191 (Version 1)
Quarter: 2012Q4

REPORT INFORMATION
  Report Type: 
  Country: US (occurrence: US)
  Receive Date: 20121218
  Receipt Date: 20121218
  Transmission Date: 20130627
  Serious: No
  Sender: FDA-Public Use
  Company Number: US-GLAXOSMITHKLINE-A0951961A

PATIENT
  Age: 60 Year
  Sex: Female

DRUGS (2)
  1. COMMIT [Suspect]
     Indication: EX-TOBACCO USER
     Dates: start: 20111008
  2. COMMIT [Suspect]
     Indication: EX-TOBACCO USER
     Dates: start: 20111008

REACTIONS (4)
  - Gingival bleeding [Not Recovered/Not Resolved]
  - Tooth infection [Not Recovered/Not Resolved]
  - Breath odour [Not Recovered/Not Resolved]
  - Dysgeusia [Not Recovered/Not Resolved]
